FAERS Safety Report 9731302 (Version 1)
Quarter: 2013Q4

REPORT INFORMATION
  Report Type: Spontaneous
  Country: GB (occurrence: GB)
  Receive Date: 20131203
  Receipt Date: 20131203
  Transmission Date: 20140711
  Serious: Yes (Disabling)
  Sender: FDA-Public Use
  Company Number: GB-BAYER-2013-143310

PATIENT
  Age: 40 Year
  Sex: Female
  Weight: 55 kg

DRUGS (2)
  1. MIRENA [Suspect]
     Dosage: 20 MCG/24HR, CONT
     Route: 015
  2. LOESTRIN [Concomitant]
     Dosage: UNK
     Dates: end: 20131030

REACTIONS (2)
  - Premenstrual syndrome [Recovered/Resolved]
  - Depressed mood [Recovered/Resolved]
